FAERS Safety Report 13864345 (Version 8)
Quarter: 2018Q2

REPORT INFORMATION
  Report Type: Spontaneous
  Country: FR (occurrence: FR)
  Receive Date: 20170814
  Receipt Date: 20180608
  Transmission Date: 20180711
  Serious: Yes (Disabling, Other)
  Sender: FDA-Public Use
  Company Number: FR-SA-2017SA078714

PATIENT
  Age: 62 Year
  Sex: Male

DRUGS (29)
  1. RIMIFON [Suspect]
     Active Substance: ISONIAZID
     Indication: SILICOTUBERCULOSIS
     Dosage: UNK
     Dates: start: 201607
  2. SIFROL [Suspect]
     Active Substance: PRAMIPEXOLE
     Dosage: 1.05 MG,QD
     Route: 048
     Dates: start: 20170225
  3. VENTOLIN [SALBUTAMOL] [Concomitant]
     Dosage: 2 DF,PRN
     Route: 065
     Dates: start: 2015
  4. AMLOR [Concomitant]
     Active Substance: AMLODIPINE BESYLATE
     Dosage: UNK UNK,UNK
     Route: 048
     Dates: start: 2013
  5. VITAMIN B1 AND B6 [Concomitant]
     Active Substance: PYRIDOXINE HYDROCHLORIDE\THIAMINE HYDROCHLORIDE
     Dosage: 2 DF,QD
     Route: 048
     Dates: start: 20160608
  6. KARDEGIC [Concomitant]
     Active Substance: ASPIRIN DL-LYSINE
     Dosage: UNK UNK,UNK
     Route: 065
     Dates: start: 201307
  7. LEDERFOLINE [Concomitant]
     Active Substance: LEUCOVORIN CALCIUM
     Dosage: UNK UNK,UNK
     Route: 065
  8. EFIENT [Concomitant]
     Active Substance: PRASUGREL HYDROCHLORIDE
     Dosage: UNK
     Dates: start: 201307
  9. VENTOLINE [SALBUTAMOL] [Concomitant]
     Dosage: 2 DF, PRN
     Dates: start: 201501
  10. LYRICA [Concomitant]
     Active Substance: PREGABALIN
     Dosage: UNK UNK,UNK
     Route: 048
     Dates: start: 201505
  11. TAHOR [Concomitant]
     Active Substance: ATORVASTATIN CALCIUM
     Dosage: UNK UNK,UNK
     Route: 065
     Dates: start: 201307
  12. DOMPERIDONE [Concomitant]
     Active Substance: DOMPERIDONE
     Dosage: UNK UNK,UNK
     Route: 065
     Dates: start: 201603
  13. SIFROL [Suspect]
     Active Substance: PRAMIPEXOLE
     Dosage: .52 MG,QD
     Route: 048
     Dates: start: 201511, end: 20170225
  14. AZILECT [Suspect]
     Active Substance: RASAGILINE MESYLATE
     Indication: PARKINSONISM
     Dosage: 1 DF,QD
     Route: 065
     Dates: start: 20141217
  15. AMOXICILLIN;CLAVULANIC ACID [Concomitant]
  16. RIFINAH [Suspect]
     Active Substance: ISONIAZID\RIFAMPIN
     Indication: SILICOTUBERCULOSIS
     Dosage: 2 DF,QD
     Route: 065
     Dates: start: 20160812
  17. NEUPRO [Concomitant]
     Active Substance: ROTIGOTINE
     Dosage: UNK UNK,UNK
     Route: 062
     Dates: start: 20150923
  18. NEUPRO [Concomitant]
     Active Substance: ROTIGOTINE
     Dosage: UNK
     Dates: start: 201510
  19. DEXAMBUTOL [Concomitant]
     Active Substance: ETHAMBUTOL HYDROCHLORIDE
     Dosage: 2 DF,QD
     Route: 048
     Dates: start: 20160608
  20. PIRIBEDIL [Concomitant]
     Active Substance: PIRIBEDIL
     Dosage: UNK UNK,UNK
     Route: 065
     Dates: start: 2015
  21. LEVITRA [Concomitant]
     Active Substance: VARDENAFIL HYDROCHLORIDE TRIHYDRATE
     Dosage: UNK UNK,UNK
     Route: 065
     Dates: start: 201507
  22. RIFATER [Suspect]
     Active Substance: ISONIAZID\PYRAZINAMIDE\RIFAMPIN
     Indication: SILICOTUBERCULOSIS
     Dosage: 5 DF,QD
     Route: 065
     Dates: start: 20160612, end: 20160812
  23. RIMIFON [Suspect]
     Active Substance: ISONIAZID
     Dosage: 2 DF,QD
     Route: 065
     Dates: start: 20161212, end: 20161215
  24. SIFROL [Suspect]
     Active Substance: PRAMIPEXOLE
     Indication: PARKINSONISM
     Dosage: .26 MG,QD
     Route: 048
     Dates: start: 20150723
  25. SIFROL [Suspect]
     Active Substance: PRAMIPEXOLE
     Dosage: 1.57 UNK
     Route: 048
  26. SERETIDE [Concomitant]
     Active Substance: FLUTICASONE PROPIONATE\SALMETEROL XINAFOATE
     Dosage: 2 DF,QD
     Route: 065
     Dates: start: 201501
  27. TARDYFERON [Concomitant]
     Active Substance: FERROUS SULFATE
     Dosage: UNK
     Dates: start: 201603
  28. RIFATER [Suspect]
     Active Substance: ISONIAZID\PYRAZINAMIDE\RIFAMPIN
     Dosage: UNK
     Dates: start: 201606, end: 201607
  29. TRIATEC [RAMIPRIL] [Concomitant]
     Dosage: UNK UNK,UNK
     Route: 048
     Dates: start: 2013

REACTIONS (26)
  - Condition aggravated [Not Recovered/Not Resolved]
  - Musculoskeletal disorder [Not Recovered/Not Resolved]
  - Myalgia [Unknown]
  - Nervous system disorder [Recovering/Resolving]
  - Extrapyramidal disorder [Not Recovered/Not Resolved]
  - Delusion [Not Recovered/Not Resolved]
  - Disinhibition [Not Recovered/Not Resolved]
  - Condition aggravated [Unknown]
  - Vision blurred [Not Recovered/Not Resolved]
  - Malaise [Not Recovered/Not Resolved]
  - Neuropathy peripheral [Unknown]
  - Loss of personal independence in daily activities [Unknown]
  - Pain [Unknown]
  - Dizziness [Unknown]
  - Compulsive shopping [Not Recovered/Not Resolved]
  - Gait disturbance [Unknown]
  - Muscular weakness [Not Recovered/Not Resolved]
  - Fatigue [Not Recovered/Not Resolved]
  - Weight decreased [Unknown]
  - Supraventricular tachycardia [Unknown]
  - Potentiating drug interaction [Not Recovered/Not Resolved]
  - Constipation [Not Recovered/Not Resolved]
  - Crying [Not Recovered/Not Resolved]
  - Suicidal ideation [Not Recovered/Not Resolved]
  - Postural tremor [Not Recovered/Not Resolved]
  - Melanocytic naevus [Not Recovered/Not Resolved]

NARRATIVE: CASE EVENT DATE: 201507
